FAERS Safety Report 6942320-2 (Version None)
Quarter: 2010Q3

REPORT INFORMATION
  Report Type: 
  Country: None (occurrence: None)
  Receive Date: 20100826
  Receipt Date: 20100813
  Transmission Date: 20110219
  Serious: No
  Sender: FDA-Public Use
  Company Number: US-JNJFOC-20100805407

PATIENT
  Sex: Male
  Weight: 97.52 kg

DRUGS (3)
  1. FENTANYL CITRATE [Suspect]
     Indication: PAIN MANAGEMENT
     Route: 062
  2. UNKNOWN MEDICATION [Concomitant]
     Route: 065
  3. FENTANYL CITRATE [Concomitant]
     Route: 062

REACTIONS (3)
  - PRODUCT ADHESION ISSUE [None]
  - WITHDRAWAL SYNDROME [None]
  - WRONG TECHNIQUE IN DRUG USAGE PROCESS [None]
